FAERS Safety Report 24385416 (Version 2)
Quarter: 2024Q4

REPORT INFORMATION
  Report Type: Spontaneous
  Country: US (occurrence: US)
  Receive Date: 20241001
  Receipt Date: 20241129
  Transmission Date: 20250115
  Serious: No
  Sender: SANOFI AVENTIS
  Company Number: US-SA-2024SA274688

PATIENT
  Age: 2 Year
  Sex: Female

DRUGS (1)
  1. DUPILUMAB [Suspect]
     Active Substance: DUPILUMAB
     Indication: Eczema
     Dosage: 200 MG, Q4W
     Route: 058
     Dates: start: 202408

REACTIONS (5)
  - Food allergy [Unknown]
  - Pyrexia [Unknown]
  - Cough [Unknown]
  - Nasal discharge discolouration [Unknown]
  - Eczema [Unknown]

NARRATIVE: CASE EVENT DATE: 20240101
